FAERS Safety Report 18017837 (Version 1)
Quarter: 2020Q3

REPORT INFORMATION
  Report Type: Spontaneous
  Country: US (occurrence: US)
  Receive Date: 20200713
  Receipt Date: 20200713
  Transmission Date: 20201103
  Serious: Yes (Death)
  Sender: FDA-Public Use
  Company Number: US-SEATTLE GENETICS-2020SGN02636

PATIENT
  Sex: Female

DRUGS (2)
  1. TUKYSA [Suspect]
     Active Substance: TUCATINIB
     Indication: BREAST CANCER FEMALE
  2. CAPECITABINE. [Concomitant]
     Active Substance: CAPECITABINE

REACTIONS (6)
  - Mobility decreased [Unknown]
  - Failure to thrive [Unknown]
  - Hypersomnia [Unknown]
  - Death [Fatal]
  - Product dose omission issue [Unknown]
  - Decreased appetite [Unknown]
